FAERS Safety Report 7346581-X (Version None)
Quarter: 2011Q1

REPORT INFORMATION
  Report Type: 
  Country: None (occurrence: None)
  Receive Date: 20110311
  Receipt Date: 20101122
  Transmission Date: 20110831
  Serious: Yes (Hospitalization, Other)
  Sender: FDA-Public Use
  Company Number: US-JNJFOC-M-730017

PATIENT
  Age: 34 Year
  Sex: Female

DRUGS (6)
  1. HALDOL [Suspect]
     Route: 030
     Dates: start: 19720707
  2. HALDOL [Suspect]
     Dosage: DOSE WAS 30 TO 40 MG/DAY
     Route: 065
  3. LITHIUM CARBONATE [Interacting]
     Indication: MANIA
     Route: 065
  4. HALDOL [Suspect]
     Indication: MANIA
     Route: 048
     Dates: start: 19720707
  5. HALDOL [Suspect]
     Route: 065
  6. COGENTIN [Concomitant]
     Route: 065

REACTIONS (5)
  - TOXIC ENCEPHALOPATHY [None]
  - PARKINSONISM [None]
  - DRUG INTERACTION [None]
  - DEMENTIA [None]
  - INCORRECT DOSE ADMINISTERED [None]
